FAERS Safety Report 5593292-7 (Version None)
Quarter: 2008Q1

REPORT INFORMATION
  Report Type: 
  Country: None (occurrence: None)
  Receive Date: 20080116
  Receipt Date: 20080107
  Transmission Date: 20080703
  Serious: Yes (Death, Hospitalization)
  Sender: FDA-Public Use
  Company Number: A0700115A

PATIENT
  Age: 59 Year
  Sex: Male
  Weight: 114.9 kg

DRUGS (2)
  1. TOPOTECAN [Suspect]
     Indication: METASTASES TO CENTRAL NERVOUS SYSTEM
     Dosage: 1MG CYCLIC
     Route: 048
     Dates: start: 20071126, end: 20071207
  2. RADIATION [Suspect]
     Indication: METASTASES TO CENTRAL NERVOUS SYSTEM
     Route: 061

REACTIONS (4)
  - CONFUSIONAL STATE [None]
  - DEATH [None]
  - HEADACHE [None]
  - LETHARGY [None]
